FAERS Safety Report 11648297 (Version 2)
Quarter: 2015Q4

REPORT INFORMATION
  Report Type: Spontaneous
  Country: DE (occurrence: DE)
  Receive Date: 20151021
  Receipt Date: 20151026
  Transmission Date: 20160304
  Serious: Yes (Hospitalization, Other)
  Sender: FDA-Public Use
  Company Number: DE-JNJFOC-20150919122

PATIENT
  Age: 70 Year
  Sex: Male
  Weight: 89 kg

DRUGS (10)
  1. PROVAS COMP [Concomitant]
     Route: 065
  2. VALSARTAN. [Concomitant]
     Active Substance: VALSARTAN
     Dosage: 1-0-0
     Route: 065
  3. XARELTO [Suspect]
     Active Substance: RIVAROXABAN
     Indication: EMBOLISM VENOUS
     Dosage: TWICE ONCE OR TWICE ONGOING
     Route: 048
     Dates: start: 20150809, end: 20150820
  4. CLEXANE [Concomitant]
     Active Substance: ENOXAPARIN SODIUM
     Dosage: 1-0-1
     Route: 058
  5. BISOPROLOL [Concomitant]
     Active Substance: BISOPROLOL
     Route: 065
  6. IBUPROFEN. [Concomitant]
     Active Substance: IBUPROFEN
     Dosage: 1-1-1
     Route: 065
  7. XARELTO [Suspect]
     Active Substance: RIVAROXABAN
     Indication: DEEP VEIN THROMBOSIS
     Dosage: TWICE ONCE OR TWICE ONGOING
     Route: 048
     Dates: start: 20150809, end: 20150820
  8. METAMIZOLE [Concomitant]
     Active Substance: METAMIZOLE
     Dosage: 1-1-1-1
     Route: 065
  9. PARACETAMOL [Concomitant]
     Active Substance: ACETAMINOPHEN
     Dosage: 1-1-1-1
     Route: 065
  10. PANTOPRAZOLE [Concomitant]
     Active Substance: PANTOPRAZOLE SODIUM
     Route: 065

REACTIONS (3)
  - Post procedural haemorrhage [Recovered/Resolved]
  - Muscle haemorrhage [Recovering/Resolving]
  - Compartment syndrome [Recovering/Resolving]

NARRATIVE: CASE EVENT DATE: 20150815
